FAERS Safety Report 25406669 (Version 1)
Quarter: 2025Q2

REPORT INFORMATION
  Report Type: Report from Study
  Country: CA (occurrence: CA)
  Receive Date: 20250606
  Receipt Date: 20250606
  Transmission Date: 20250717
  Serious: Yes (Other)
  Sender: NORDIC PHARMA
  Company Number: CA-NORDICGR-062801

PATIENT
  Age: 49 Year
  Sex: Female
  Weight: 58 kg

DRUGS (14)
  1. METHOTREXATE [Suspect]
     Active Substance: METHOTREXATE
     Indication: Product used for unknown indication
     Route: 065
  2. CITALOPRAM HYDROBROMIDE [Concomitant]
     Active Substance: CITALOPRAM HYDROBROMIDE
     Indication: Product used for unknown indication
     Route: 048
  3. CALCIUM CARBONATE\CHOLECALCIFEROL [Concomitant]
     Active Substance: CALCIUM CARBONATE\CHOLECALCIFEROL
     Indication: Product used for unknown indication
     Route: 065
  4. RITUXIMAB [Concomitant]
     Active Substance: RITUXIMAB
     Indication: Rheumatoid arthritis
     Route: 042
  5. ACTEMRA [Concomitant]
     Active Substance: TOCILIZUMAB
     Indication: Rheumatoid arthritis
     Route: 042
  6. ACTEMRA [Concomitant]
     Active Substance: TOCILIZUMAB
     Indication: Rheumatoid arthritis
     Route: 042
  7. ACTEMRA [Concomitant]
     Active Substance: TOCILIZUMAB
     Indication: Rheumatoid arthritis
     Route: 042
  8. ACTEMRA [Concomitant]
     Active Substance: TOCILIZUMAB
     Indication: Rheumatoid arthritis
     Route: 042
  9. CELEBREX [Concomitant]
     Active Substance: CELECOXIB
     Indication: Product used for unknown indication
     Route: 065
  10. PROLIA [Concomitant]
     Active Substance: DENOSUMAB
     Indication: Osteoporosis
     Route: 065
  11. PREDNISONE [Concomitant]
     Active Substance: PREDNISONE
     Indication: Product used for unknown indication
     Route: 065
  12. FOLIC ACID [Concomitant]
     Active Substance: FOLIC ACID
     Indication: Product used for unknown indication
     Route: 065
  13. ROSUVASTATIN CALCIUM [Concomitant]
     Active Substance: ROSUVASTATIN CALCIUM
     Indication: Product used for unknown indication
     Route: 065
  14. RISEDRONATE SODIUM [Concomitant]
     Active Substance: RISEDRONATE SODIUM
     Indication: Product used for unknown indication
     Route: 048

REACTIONS (22)
  - Arthropathy [Recovered/Resolved]
  - Costochondritis [Recovered/Resolved]
  - Infusion related reaction [Recovered/Resolved]
  - Joint stiffness [Recovered/Resolved]
  - Lipids increased [Recovered/Resolved]
  - Foot deformity [Recovered/Resolved]
  - Pain in extremity [Recovered/Resolved]
  - Joint effusion [Recovered/Resolved]
  - Arthralgia [Recovered/Resolved]
  - Blood cholesterol increased [Recovered/Resolved]
  - Joint swelling [Recovered/Resolved]
  - Blood immunoglobulin G increased [Recovered/Resolved]
  - Fibromyalgia [Recovered/Resolved]
  - Musculoskeletal chest pain [Recovered/Resolved]
  - Transaminases increased [Recovered/Resolved]
  - Bone pain [Recovered/Resolved]
  - Joint range of motion decreased [Recovered/Resolved]
  - Muscular weakness [Recovered/Resolved]
  - Toothache [Recovered/Resolved]
  - Therapeutic product effect incomplete [Recovered/Resolved]
  - Musculoskeletal stiffness [Recovered/Resolved]
  - Neck pain [Recovered/Resolved]
